FAERS Safety Report 19063331 (Version 1)
Quarter: 2021Q1

REPORT INFORMATION
  Report Type: Spontaneous
  Country: IE (occurrence: IE)
  Receive Date: 20210326
  Receipt Date: 20210326
  Transmission Date: 20210420
  Serious: Yes (Other)
  Sender: FDA-Public Use
  Company Number: IE-TEVA-2021-IE-1874373

PATIENT
  Sex: Male

DRUGS (1)
  1. COPAXONE [Suspect]
     Active Substance: GLATIRAMER ACETATE
     Route: 065

REACTIONS (6)
  - Injection site reaction [Unknown]
  - Device difficult to use [Unknown]
  - Device delivery system issue [Unknown]
  - Mass [Unknown]
  - Disease recurrence [Unknown]
  - Adverse drug reaction [Unknown]
